FAERS Safety Report 21434099 (Version 1)
Quarter: 2022Q4

REPORT INFORMATION
  Report Type: Spontaneous
  Country: US (occurrence: US)
  Receive Date: 20221010
  Receipt Date: 20221010
  Transmission Date: 20230113
  Serious: Yes (Other)
  Sender: FDA-Public Use
  Company Number: None

PATIENT
  Age: 54 Year
  Sex: Male

DRUGS (4)
  1. TOBRAMYCIN [Suspect]
     Active Substance: TOBRAMYCIN
     Indication: Limbal stem cell deficiency
     Dosage: TOPICAL ANTIBIOTICS
     Route: 061
  2. OCUFLOX [Suspect]
     Active Substance: OFLOXACIN
     Indication: Limbal stem cell deficiency
     Dosage: TOPICAL ANTIBIOTICS
     Route: 061
  3. PREDNISOLONE [Suspect]
     Active Substance: PREDNISOLONE
     Indication: Limbal stem cell deficiency
     Route: 047
  4. HYPROMELLOSES [Suspect]
     Active Substance: HYPROMELLOSES
     Indication: Limbal stem cell deficiency
     Route: 065

REACTIONS (1)
  - Corneal epithelium defect [Recovered/Resolved]
